FAERS Safety Report 7870647-9 (Version None)
Quarter: 2011Q3

REPORT INFORMATION
  Report Type: 
  Country: None (occurrence: None)
  Receive Date: 20110628
  Receipt Date: 20110617
  Transmission Date: 20111222
  Serious: Yes (Other)
  Sender: FDA-Public Use
  Company Number: 2011SP028562

PATIENT
  Sex: Female

DRUGS (2)
  1. PROVENTIL-HFA [Suspect]
     Indication: ASTHMA
  2. VENTOLIN [Concomitant]

REACTIONS (2)
  - ASTHMA [None]
  - OFF LABEL USE [None]
